FAERS Safety Report 21334099 (Version 1)
Quarter: 2022Q3

REPORT INFORMATION
  Report Type: Spontaneous
  Country: ES (occurrence: ES)
  Receive Date: 20220914
  Receipt Date: 20220914
  Transmission Date: 20221027
  Serious: Yes (Life-Threatening, Other)
  Sender: FDA-Public Use
  Company Number: ES-009507513-2209ESP005047

PATIENT
  Age: 64 Year
  Sex: Male
  Weight: 78 kg

DRUGS (1)
  1. DAPTOMYCIN [Suspect]
     Active Substance: DAPTOMYCIN
     Dosage: 800 MILLIGRAM, Q24H
     Dates: start: 20201029, end: 20201106

REACTIONS (6)
  - Retroperitoneal haemorrhage [Recovered/Resolved with Sequelae]
  - Pseudomonas infection [Unknown]
  - Deep vein thrombosis [Not Recovered/Not Resolved]
  - Sepsis [Recovered/Resolved]
  - Haemodynamic instability [Recovered/Resolved]
  - Intertrigo [Recovered/Resolved]

NARRATIVE: CASE EVENT DATE: 20201102
